FAERS Safety Report 10163007 (Version 1)
Quarter: 2014Q2

REPORT INFORMATION
  Report Type: Spontaneous
  Country: US (occurrence: US)
  Receive Date: 20140509
  Receipt Date: 20140509
  Transmission Date: 20141212
  Serious: Yes (Other)
  Sender: FDA-Public Use
  Company Number: US-TEVA-480435USA

PATIENT
  Age: 56 Year
  Sex: Male

DRUGS (3)
  1. PROVIGIL [Suspect]
     Dosage: TAKES TWO 200 MG TABLETS BY MOUTH TWICE DAILY
  2. METOPROLOL [Concomitant]
  3. MULTIVITAMINS [Concomitant]

REACTIONS (6)
  - Haemorrhage [Not Recovered/Not Resolved]
  - Dry skin [Not Recovered/Not Resolved]
  - Skin fissures [Not Recovered/Not Resolved]
  - Psoriasis [Unknown]
  - Drug ineffective [Unknown]
  - Alanine aminotransferase increased [Recovered/Resolved]
